FAERS Safety Report 9125366 (Version 1)
Quarter: 2013Q1

REPORT INFORMATION
  Report Type: Spontaneous
  Country: PR (occurrence: PR)
  Receive Date: 20130117
  Receipt Date: 20130117
  Transmission Date: 20140127
  Serious: Yes (Other)
  Sender: FDA-Public Use
  Company Number: PR-BRISTOL-MYERS SQUIBB COMPANY-17020934

PATIENT
  Age: 52 Year
  Sex: Female

DRUGS (3)
  1. YERVOY [Suspect]
     Indication: METASTATIC OCULAR MELANOMA
     Dosage: IV DILUTING IN ^250 5%^ DEXTROSE, RECEIVED TOTAL 3 DOSES?RECENT DOSE:19-SEP-2012.
     Route: 042
     Dates: start: 20120802
  2. METFORMIN [Concomitant]
  3. INSULIN [Concomitant]

REACTIONS (1)
  - Toxic epidermal necrolysis [Recovered/Resolved]
